FAERS Safety Report 9339413 (Version 1)
Quarter: 2013Q2

REPORT INFORMATION
  Report Type: Spontaneous
  Country: US (occurrence: None)
  Receive Date: 20130607
  Receipt Date: 20130607
  Transmission Date: 20140414
  Serious: Yes (Death)
  Sender: FDA-Public Use
  Company Number: None

PATIENT
  Age: 43 Year
  Sex: Female
  Weight: 51.71 kg

DRUGS (2)
  1. VARENICLINE OR MATCHED PLACEBO 0.5MG AND 1.0MG PFIZER [Suspect]
     Indication: SMOKING CESSATION THERAPY
     Dosage: 0.5MG; 1.0MG 1QD X3D; 1BIDX81D PO
     Route: 048
     Dates: start: 20120525, end: 20120608
  2. NICODERM CQ OR MATCHED PLACEBO 21MG, 14MG, AND 7MG GSK AND/OR REJUVENATION LABS [Suspect]
     Indication: SMOKING CESSATION THERAPY
     Dosage: 21MG, 14MG, AND 7MG ONCE DAILY TRANDERMAL
     Route: 062
     Dates: start: 20120601, end: 20120816

REACTIONS (1)
  - Death [None]
